FAERS Safety Report 24607888 (Version 1)
Quarter: 2024Q4

REPORT INFORMATION
  Report Type: Spontaneous
  Country: US (occurrence: None)
  Receive Date: 20241111
  Receipt Date: 20241111
  Transmission Date: 20250114
  Serious: Yes (Other)
  Sender: Public
  Company Number: None

PATIENT
  Age: 59 Year
  Sex: Female
  Weight: 48.6 kg

DRUGS (9)
  1. FLUOROURACIL [Suspect]
     Active Substance: FLUOROURACIL
     Indication: Squamous cell carcinoma of skin
     Route: 061
  2. PULMICORT TURBUHALER [Concomitant]
     Active Substance: BUDESONIDE
  3. FEXOFENADINE [Concomitant]
  4. multivitamin [Concomitant]
  5. vitamin D [Concomitant]
  6. vitamin A [Concomitant]
  7. vitamin C [Concomitant]
  8. VITAMIN B [Concomitant]
  9. PROBIOTICS NOS [Concomitant]
     Active Substance: PROBIOTICS NOS

REACTIONS (4)
  - Visual impairment [None]
  - Vision blurred [None]
  - Therapy interrupted [None]
  - Economic problem [None]

NARRATIVE: CASE EVENT DATE: 20240910
